FAERS Safety Report 5812420-9 (Version None)
Quarter: 2008Q3

REPORT INFORMATION
  Report Type: 
  Country: None (occurrence: None)
  Receive Date: 20080711
  Receipt Date: 20080626
  Transmission Date: 20090109
  Serious: Yes (Other)
  Sender: FDA-Public Use
  Company Number: TOR 2008-0024

PATIENT
  Sex: Female

DRUGS (1)
  1. FARESTON [Suspect]
     Indication: BREAST CANCER
     Dosage: 120 MG ORAL
     Route: 048
     Dates: start: 20080501

REACTIONS (1)
  - INTERSTITIAL LUNG DISEASE [None]
